FAERS Safety Report 9125977 (Version 1)
Quarter: 2013Q1

REPORT INFORMATION
  Report Type: Report from Study
  Country: US (occurrence: US)
  Receive Date: 20130121
  Receipt Date: 20130121
  Transmission Date: 20140127
  Serious: Yes (Other)
  Sender: FDA-Public Use
  Company Number: US-ABBOTT-13P-163-1036234-00

PATIENT
  Age: 40 None
  Sex: Female

DRUGS (5)
  1. HUMIRA [Suspect]
     Dates: start: 201105, end: 201202
  2. HUMIRA [Suspect]
     Dates: start: 201210
  3. IMURAN [Concomitant]
     Indication: CROHN^S DISEASE
  4. HUMIRA [Suspect]
     Indication: CROHN^S DISEASE
     Dosage: 160 MG LOADING DOSE
     Dates: start: 201105, end: 201105
  5. HUMIRA [Suspect]
     Dosage: 80 MG LOADING DOSE
     Dates: start: 201105, end: 201105

REACTIONS (4)
  - Gastrointestinal inflammation [Recovered/Resolved]
  - Abdominal pain [Recovered/Resolved]
  - Crohn^s disease [Not Recovered/Not Resolved]
  - Fatigue [Not Recovered/Not Resolved]
